FAERS Safety Report 8578423-9 (Version None)
Quarter: 2012Q3

REPORT INFORMATION
  Report Type: 
  Country: None (occurrence: None)
  Receive Date: 20120808
  Receipt Date: 20120730
  Transmission Date: 20120928
  Serious: Yes (Other)
  Sender: FDA-Public Use
  Company Number: US-JNJFOC-20111008378

PATIENT
  Sex: Male

DRUGS (32)
  1. FENTANYL-100 [Suspect]
     Route: 062
     Dates: start: 20090101
  2. BACLOFEN [Concomitant]
     Indication: MUSCLE SPASMS
     Route: 048
  3. ATENOLOL [Concomitant]
     Indication: BLOOD PRESSURE
     Route: 048
  4. POTASSIUM [Concomitant]
     Indication: SUPPLEMENTATION THERAPY
     Route: 048
  5. UNKNOWN MEDICATION [Concomitant]
     Indication: MUSCLE SPASMS
     Route: 048
  6. FENTANYL-100 [Suspect]
     Route: 062
     Dates: start: 20090101
  7. FENTANYL-100 [Suspect]
     Route: 062
     Dates: end: 20110901
  8. FENTANYL-100 [Suspect]
     Route: 062
     Dates: start: 20091101
  9. FENTANYL-100 [Suspect]
     Route: 062
     Dates: start: 20100101
  10. FENTANYL-100 [Suspect]
     Route: 062
     Dates: start: 20091101
  11. UNKNOWN MEDICATION [Concomitant]
     Indication: PAIN
     Route: 037
  12. FENTANYL-100 [Suspect]
     Indication: NERVE DEGENERATION
     Route: 062
     Dates: start: 20110901
  13. FENTANYL-100 [Suspect]
     Indication: OSTEOARTHRITIS
     Route: 062
     Dates: end: 20100101
  14. FENTANYL-100 [Suspect]
     Route: 062
     Dates: start: 20100101, end: 20100101
  15. FENTANYL-100 [Suspect]
     Route: 062
     Dates: start: 20100101, end: 20100101
  16. SIMVASTATIN [Concomitant]
     Indication: BLOOD CHOLESTEROL INCREASED
     Route: 048
  17. FENTANYL-100 [Suspect]
     Route: 062
     Dates: start: 20100101
  18. UNKNOWN MEDICATION [Concomitant]
     Indication: INFLAMMATION
     Route: 048
  19. CHLOROTHIAZIDE [Concomitant]
     Indication: DIURETIC THERAPY
     Route: 048
  20. FENTANYL-100 [Suspect]
     Indication: NERVE DEGENERATION
     Route: 062
     Dates: start: 20100101, end: 20100101
  21. FENTANYL-100 [Suspect]
     Route: 062
     Dates: end: 20100101
  22. FENTANYL-100 [Suspect]
     Route: 062
     Dates: start: 20091101
  23. FENTANYL-100 [Suspect]
     Route: 062
     Dates: start: 20100101
  24. DURAGESIC-100 [Suspect]
     Indication: PAIN
     Route: 062
  25. BUTRANS [Concomitant]
     Indication: PAIN
     Route: 062
  26. FENTANYL-100 [Suspect]
     Route: 062
     Dates: end: 20110901
  27. FENTANYL-100 [Suspect]
     Indication: PAIN
     Route: 062
     Dates: end: 20110901
  28. FENTANYL-100 [Suspect]
     Route: 062
     Dates: end: 20100101
  29. TIZANIDINE HYDROCHLORIDE [Concomitant]
     Indication: MUSCLE SPASMS
     Route: 048
  30. ENALAPRIL MALEATE [Concomitant]
     Indication: BLOOD PRESSURE
     Dosage: 2-20MG TWICE DAILY
     Route: 048
  31. MORPHINE SULFATE [Concomitant]
     Route: 048
  32. FENTANYL-100 [Suspect]
     Indication: OSTEOARTHRITIS
     Route: 062
     Dates: start: 20110901

REACTIONS (15)
  - FOOT DEFORMITY [None]
  - PRODUCT QUALITY ISSUE [None]
  - INCORRECT DRUG ADMINISTRATION RATE [None]
  - ABNORMAL LOSS OF WEIGHT [None]
  - INCORRECT DRUG ADMINISTRATION DURATION [None]
  - DRUG DISPENSING ERROR [None]
  - JOINT EFFUSION [None]
  - INADEQUATE ANALGESIA [None]
  - HAND DEFORMITY [None]
  - EXPIRED DRUG ADMINISTERED [None]
  - PRODUCT PHYSICAL ISSUE [None]
  - INSOMNIA [None]
  - MUSCLE SPASMS [None]
  - ABNORMAL BEHAVIOUR [None]
  - DRUG INEFFECTIVE [None]
